FAERS Safety Report 21050233 (Version 2)
Quarter: 2022Q3

REPORT INFORMATION
  Report Type: Spontaneous
  Country: FI (occurrence: FI)
  Receive Date: 20220706
  Receipt Date: 20220826
  Transmission Date: 20221027
  Serious: Yes (Hospitalization, Other)
  Sender: FDA-Public Use
  Company Number: FI-CELLTRION INC.-2022FI008957

PATIENT

DRUGS (33)
  1. RITUXIMAB [Suspect]
     Active Substance: RITUXIMAB
     Indication: Lymphoma
     Dosage: PART OF R-CHOP AND R-CHOEP REGIMEN
     Route: 065
  2. RITUXIMAB [Suspect]
     Active Substance: RITUXIMAB
     Indication: B-cell small lymphocytic lymphoma
     Dosage: UNK, CYCLIC (3 CYCLES)
     Route: 065
  3. CYCLOPHOSPHAMIDE [Suspect]
     Active Substance: CYCLOPHOSPHAMIDE
     Indication: Lymphoma
     Dosage: PART OF R-CHOP AND R-CHOEP REGIMEN
     Route: 065
  4. ETOPOSIDE [Suspect]
     Active Substance: ETOPOSIDE
     Indication: Lymphoma
     Dosage: PART OF R-CHOEP REGIMEN
     Route: 065
  5. VINCRISTINE [Suspect]
     Active Substance: VINCRISTINE
     Indication: Lymphoma
     Dosage: PART OF R-CHOP AND R-CHOEP REGIMEN
     Route: 065
  6. DOXORUBICIN [Suspect]
     Active Substance: DOXORUBICIN
     Indication: Lymphoma
     Dosage: PART OF R-CHOP AND R-CHOEP REGIMEN
     Route: 065
  7. METHOTREXATE [Suspect]
     Active Substance: METHOTREXATE
     Indication: Lymphoma
     Dosage: TWICE
     Route: 065
  8. PREDNISOLONE [Suspect]
     Active Substance: PREDNISOLONE
     Indication: Lymphoma
     Dosage: PART OF R-CHOP AND R-CHOEP REGIMEN
     Route: 065
  9. VANCOMYCIN [Suspect]
     Active Substance: VANCOMYCIN
     Indication: Antibiotic therapy
     Route: 065
  10. CIPROFLOXACIN [Suspect]
     Active Substance: CIPROFLOXACIN
     Indication: Antibiotic therapy
     Route: 065
  11. LEVOFLOXACIN [Suspect]
     Active Substance: LEVOFLOXACIN
     Indication: Product used for unknown indication
  12. CEFEPIME [Concomitant]
     Active Substance: CEFEPIME HYDROCHLORIDE
     Indication: Antibiotic therapy
     Route: 065
  13. CEFEPIME [Concomitant]
     Active Substance: CEFEPIME HYDROCHLORIDE
     Indication: Evidence based treatment
  14. CEFEPIME [Concomitant]
     Active Substance: CEFEPIME HYDROCHLORIDE
     Indication: Pyrexia
  15. CEFEPIME [Concomitant]
     Active Substance: CEFEPIME HYDROCHLORIDE
     Indication: Neutropenia
  16. VINCRISTINE [Concomitant]
     Active Substance: VINCRISTINE
     Indication: B-cell small lymphocytic lymphoma
     Dosage: UNK, CYCLIC (3 CYCLES)
     Route: 065
  17. ETOPOSIDE [Concomitant]
     Active Substance: ETOPOSIDE
     Indication: B-cell small lymphocytic lymphoma
     Dosage: UNK, CYCLIC (3RD CYCLE)
     Route: 065
  18. DOXORUBICIN [Concomitant]
     Active Substance: DOXORUBICIN
     Indication: B-cell small lymphocytic lymphoma
     Dosage: UNK, CYCLIC (3 CYCLES)
     Route: 065
  19. CYCLOPHOSPHAMIDE [Concomitant]
     Active Substance: CYCLOPHOSPHAMIDE
     Indication: B-cell small lymphocytic lymphoma
     Dosage: UNK, CYCLIC (3 CYCLES)
     Route: 065
  20. DALTEPARIN [Concomitant]
     Active Substance: DALTEPARIN
     Indication: Deep vein thrombosis
     Dosage: UNK
     Route: 058
  21. DALTEPARIN [Concomitant]
     Active Substance: DALTEPARIN
     Dosage: UNK
     Route: 065
  22. PREDNISOLONE [Concomitant]
     Active Substance: PREDNISOLONE
     Indication: B-cell small lymphocytic lymphoma
     Dosage: UNK, CYCLIC (3 CYCLES)
     Route: 065
  23. VANCOMYCIN [Concomitant]
     Active Substance: VANCOMYCIN
     Indication: Evidence based treatment
     Dosage: UNK
     Route: 065
  24. VANCOMYCIN [Concomitant]
     Active Substance: VANCOMYCIN
     Indication: Neutropenia
  25. VANCOMYCIN [Concomitant]
     Active Substance: VANCOMYCIN
     Indication: Pyrexia
  26. METHOTREXATE [Concomitant]
     Active Substance: METHOTREXATE
     Indication: B-cell small lymphocytic lymphoma
     Dosage: UNK (HIGH DOSE) (TWICE) (DURING 3RD CYCLE)
     Route: 065
  27. SULFAMETHOXAZOLE\TRIMETHOPRIM [Concomitant]
     Active Substance: SULFAMETHOXAZOLE\TRIMETHOPRIM
     Indication: Antifungal prophylaxis
     Dosage: UNK
     Route: 065
  28. LEVOFLOXACIN [Concomitant]
     Active Substance: LEVOFLOXACIN
     Indication: Pyrexia
     Dosage: UNK
     Route: 065
  29. LEVOFLOXACIN [Concomitant]
     Active Substance: LEVOFLOXACIN
     Indication: Neutropenia
  30. LEVOFLOXACIN [Concomitant]
     Active Substance: LEVOFLOXACIN
     Indication: Evidence based treatment
  31. CIPROFLOXACIN [Concomitant]
     Active Substance: CIPROFLOXACIN
     Indication: Pyrexia
     Dosage: UNK
     Route: 065
  32. CIPROFLOXACIN [Concomitant]
     Active Substance: CIPROFLOXACIN
     Indication: Neutropenia
  33. CIPROFLOXACIN [Concomitant]
     Active Substance: CIPROFLOXACIN
     Indication: Evidence based treatment

REACTIONS (6)
  - COVID-19 [Recovering/Resolving]
  - COVID-19 pneumonia [Recovering/Resolving]
  - Hypoxia [Recovering/Resolving]
  - Anaphylactic reaction [Recovering/Resolving]
  - Pneumonia viral [Recovering/Resolving]
  - SARS-CoV-2 antibody test negative [Unknown]
